FAERS Safety Report 10244747 (Version 1)
Quarter: 2014Q2

REPORT INFORMATION
  Report Type: Spontaneous
  Country: US (occurrence: None)
  Receive Date: 20140617
  Receipt Date: 20140617
  Transmission Date: 20141212
  Serious: No
  Sender: FDA-Public Use
  Company Number: 2014CT000041

PATIENT
  Age: 74 Year
  Sex: Female

DRUGS (1)
  1. KORLYM (300MG) [Suspect]
     Indication: PITUITARY-DEPENDENT CUSHING^S SYNDROME
     Route: 048
     Dates: start: 20131211

REACTIONS (2)
  - Weight increased [None]
  - Blood pressure increased [None]
